FAERS Safety Report 16989741 (Version 2)
Quarter: 2019Q4

REPORT INFORMATION
  Report Type: Report from Study
  Country: None (occurrence: US)
  Receive Date: 20191104
  Receipt Date: 20191122
  Transmission Date: 20200122
  Serious: Yes (Hospitalization)
  Sender: FDA-Public Use
  Company Number: US-ABBVIE-19K-163-2976748-00

PATIENT
  Age: 19 Year
  Sex: Male

DRUGS (2)
  1. HUMIRA [Suspect]
     Active Substance: ADALIMUMAB
     Indication: CROHN^S DISEASE
     Route: 058
     Dates: start: 201904
  2. HUMIRA [Suspect]
     Active Substance: ADALIMUMAB
     Route: 058
     Dates: start: 201910

REACTIONS (12)
  - Depression [Unknown]
  - Abdominal pain [Unknown]
  - Device issue [Unknown]
  - Insomnia [Unknown]
  - Crohn^s disease [Unknown]
  - Diarrhoea [Unknown]
  - Rectal abscess [Recovering/Resolving]
  - Weight decreased [Unknown]
  - Pyrexia [Unknown]
  - Loss of personal independence in daily activities [Unknown]
  - Rectal haemorrhage [Unknown]
  - Drug level decreased [Recovering/Resolving]

NARRATIVE: CASE EVENT DATE: 2019
